FAERS Safety Report 7752753-2 (Version None)
Quarter: 2011Q3

REPORT INFORMATION
  Report Type: 
  Country: None (occurrence: None)
  Receive Date: 20110915
  Receipt Date: 20110908
  Transmission Date: 20111222
  Serious: No
  Sender: FDA-Public Use
  Company Number: BR-ROCHE-801753

PATIENT
  Sex: Female
  Weight: 59 kg

DRUGS (2)
  1. ISOTRETINOIN [Suspect]
     Indication: ACNE
     Route: 048
     Dates: start: 20100825
  2. ISOTRETINOIN [Suspect]
     Dosage: STRENGTH : 10 AND 20 MG
     Route: 048
     Dates: start: 20100801, end: 20110501

REACTIONS (2)
  - NO ADVERSE EVENT [None]
  - MATERNAL EXPOSURE DURING PREGNANCY [None]
